FAERS Safety Report 18024177 (Version 1)
Quarter: 2020Q3

REPORT INFORMATION
  Report Type: Spontaneous
  Country: US (occurrence: US)
  Receive Date: 20200715
  Receipt Date: 20200715
  Transmission Date: 20201103
  Serious: No
  Sender: FDA-Public Use
  Company Number: US-GLENMARK PHARMACEUTICALS-2019GMK043825

PATIENT

DRUGS (2)
  1. MOMETASONE FUROATE OINTMENT USP, 0.1% [Suspect]
     Active Substance: MOMETASONE FUROATE
     Indication: DERMATITIS CONTACT
     Dosage: UNK
     Route: 061
  2. MOMETASONE FUROATE OINTMENT USP, 0.1% [Suspect]
     Active Substance: MOMETASONE FUROATE
     Indication: PRURITUS

REACTIONS (1)
  - Prescription drug used without a prescription [Unknown]
